FAERS Safety Report 10184514 (Version 1)
Quarter: 2014Q2

REPORT INFORMATION
  Report Type: Spontaneous
  Country: US (occurrence: US)
  Receive Date: 20140521
  Receipt Date: 20140521
  Transmission Date: 20141212
  Serious: No
  Sender: FDA-Public Use
  Company Number: US-BIOGENIDEC-2014BI046117

PATIENT
  Sex: Female

DRUGS (3)
  1. AVONEX [Suspect]
     Indication: MULTIPLE SCLEROSIS
     Route: 030
     Dates: start: 20070223
  2. AMPYRA [Concomitant]
     Indication: MULTIPLE SCLEROSIS
  3. COPAXON [Concomitant]

REACTIONS (5)
  - Weight decreased [Unknown]
  - Dehydration [Unknown]
  - Loss of consciousness [Recovered/Resolved]
  - Decreased appetite [Unknown]
  - Anxiety [Unknown]
